FAERS Safety Report 16472206 (Version 3)
Quarter: 2019Q4

REPORT INFORMATION
  Report Type: Spontaneous
  Country: US (occurrence: US)
  Receive Date: 20190625
  Receipt Date: 20191211
  Transmission Date: 20200122
  Serious: Yes (Other)
  Sender: FDA-Public Use
  Company Number: US-BEH-2019103403

PATIENT
  Age: 25 Year
  Sex: Male

DRUGS (2)
  1. HAEGARDA [Suspect]
     Active Substance: HUMAN C1-ESTERASE INHIBITOR
     Indication: PROPHYLAXIS
     Dosage: 9000 INTERNATIONAL UNIT, BIW
     Route: 058
     Dates: start: 20190519
  2. HAEGARDA [Suspect]
     Active Substance: HUMAN C1-ESTERASE INHIBITOR
     Indication: HEREDITARY ANGIOEDEMA
     Dosage: 9000 INTERNATIONAL UNIT, BIW
     Route: 058
     Dates: start: 20190516

REACTIONS (6)
  - Hereditary angioedema [Recovered/Resolved]
  - Product dose omission [Unknown]
  - Hereditary angioedema [Unknown]
  - Treatment noncompliance [Unknown]
  - No adverse event [Unknown]
  - Depression [Unknown]

NARRATIVE: CASE EVENT DATE: 20190609
